FAERS Safety Report 19627791 (Version 1)
Quarter: 2021Q3

REPORT INFORMATION
  Report Type: Spontaneous
  Country: US (occurrence: US)
  Receive Date: 20210728
  Receipt Date: 20210728
  Transmission Date: 20211014
  Serious: No
  Sender: FDA-Public Use
  Company Number: US-ASTRAZENECA-2021A605281

PATIENT
  Age: 28302 Day
  Sex: Female
  Weight: 113.4 kg

DRUGS (6)
  1. METOPROLOL SUCCINATE. [Concomitant]
     Active Substance: METOPROLOL SUCCINATE
  2. ATORVASTATIN [Concomitant]
     Active Substance: ATORVASTATIN
     Dosage: 40
  3. IMDUR [Concomitant]
     Active Substance: ISOSORBIDE MONONITRATE
  4. DULOXETINE. [Concomitant]
     Active Substance: DULOXETINE
  5. FARXIGA [Suspect]
     Active Substance: DAPAGLIFLOZIN PROPANEDIOL
     Indication: TYPE 2 DIABETES MELLITUS
     Route: 048
     Dates: start: 20210701, end: 20210701
  6. AMLODIPINE [Concomitant]
     Active Substance: AMLODIPINE BESYLATE

REACTIONS (4)
  - Ill-defined disorder [Recovered/Resolved]
  - Aphonia [Recovered/Resolved]
  - Dysstasia [Recovered/Resolved]
  - Loss of consciousness [Recovered/Resolved]

NARRATIVE: CASE EVENT DATE: 20210701
